FAERS Safety Report 16292191 (Version 13)
Quarter: 2020Q4

REPORT INFORMATION
  Report Type: Spontaneous
  Country: JP (occurrence: JP)
  Receive Date: 20190509
  Receipt Date: 20201109
  Transmission Date: 20210113
  Serious: Yes (Life-Threatening, Hospitalization)
  Sender: FDA-Public Use
  Company Number: JP-CELGENEUS-JPN-20190502458

PATIENT
  Age: 70 Year
  Sex: Male
  Weight: 41 kg

DRUGS (160)
  1. CALONAL [Concomitant]
     Active Substance: ACETAMINOPHEN
     Indication: PROPHYLAXIS
     Dosage: 600 MILLIGRAM
     Route: 048
     Dates: start: 20190410, end: 20190415
  2. FUROSEMIDE. [Concomitant]
     Active Substance: FUROSEMIDE
     Indication: PULMONARY OEDEMA
     Dosage: 40 MILLIGRAM
     Route: 041
     Dates: start: 20190406, end: 20190407
  3. LACTEC [Concomitant]
     Active Substance: CALCIUM CHLORIDE ANHYDROUS\POTASSIUM CHLORIDE\SODIUM CHLORIDE\SODIUM LACTATE
     Route: 041
     Dates: start: 20190423, end: 20190423
  4. FLUCONAZOLE. [Concomitant]
     Active Substance: FLUCONAZOLE
     Indication: ANTIFUNGAL PROPHYLAXIS
     Dosage: 100 MILLIGRAM
     Route: 048
     Dates: start: 20190409
  5. AMLODIPINE [Concomitant]
     Active Substance: AMLODIPINE BESYLATE
     Indication: HYPERTENSION
     Dosage: 2.5 MILLIGRAM
     Route: 048
     Dates: start: 20190415, end: 20190425
  6. HUMULIN R [Concomitant]
     Active Substance: INSULIN HUMAN
     Route: 058
     Dates: start: 20190413, end: 20190413
  7. HUMULIN R [Concomitant]
     Active Substance: INSULIN HUMAN
     Route: 041
     Dates: start: 20190511, end: 20190512
  8. HUMULIN R [Concomitant]
     Active Substance: INSULIN HUMAN
     Route: 058
     Dates: start: 20190521, end: 20190522
  9. GENINAX [Concomitant]
     Active Substance: GARENOXACIN MESYLATE
     Indication: INFECTION PROPHYLAXIS
     Dosage: 400 MICROGRAM
     Route: 048
     Dates: start: 20190419, end: 20190502
  10. TRANEXAMIC ACID. [Concomitant]
     Active Substance: TRANEXAMIC ACID
     Indication: UPPER GASTROINTESTINAL HAEMORRHAGE
     Dosage: 1 GRAM
     Route: 041
     Dates: start: 20190504, end: 20190505
  11. MONTELUKAST [Concomitant]
     Active Substance: MONTELUKAST SODIUM
     Indication: PROPHYLAXIS
     Route: 048
     Dates: start: 20190418, end: 20190418
  12. KCL [Concomitant]
     Active Substance: POTASSIUM CHLORIDE
     Indication: FLUID REPLACEMENT
     Dosage: 5 MILLILITER
     Route: 041
     Dates: start: 20190505, end: 20190505
  13. FENTANYL. [Concomitant]
     Active Substance: FENTANYL
     Dosage: 0.12 MILLIGRAM
     Route: 041
     Dates: start: 20190511, end: 20190513
  14. PRECEDEX [Concomitant]
     Active Substance: DEXMEDETOMIDINE HYDROCHLORIDE
     Dosage: 125.24 MICROGRAM
     Route: 041
     Dates: start: 20190511, end: 20190511
  15. NOR-ADRENALIN [Concomitant]
     Indication: ENDOTRACHEAL INTUBATION
     Dosage: 0.1 MILLIGRAM
     Route: 041
     Dates: start: 20190505, end: 20190505
  16. LIDOCAINE. [Concomitant]
     Active Substance: LIDOCAINE
     Indication: ASPIRATION BONE MARROW
     Route: 061
     Dates: start: 20190408, end: 20190409
  17. BISACODYL. [Concomitant]
     Active Substance: BISACODYL
     Indication: CONSTIPATION
     Route: 065
  18. DEXAMETHASONE. [Suspect]
     Active Substance: DEXAMETHASONE
     Indication: PLASMA CELL MYELOMA
     Route: 048
     Dates: start: 20190419, end: 20190430
  19. TRAMAL [Concomitant]
     Active Substance: TRAMADOL
     Route: 048
     Dates: start: 20190405, end: 20190405
  20. CALONAL [Concomitant]
     Active Substance: ACETAMINOPHEN
     Route: 048
     Dates: start: 20190419
  21. BACTRAMIN [Concomitant]
     Active Substance: SULFAMETHOXAZOLE\TRIMETHOPRIM
     Indication: INFECTION PROPHYLAXIS
     Dosage: 0.5 MILLIGRAM
     Route: 048
     Dates: start: 20190405
  22. KN NO.1 [Concomitant]
     Route: 041
     Dates: start: 20190423, end: 20190423
  23. GLUCOSE [Concomitant]
     Active Substance: DEXTROSE
     Indication: FLUID REPLACEMENT
     Dosage: 250 MILLILITER
     Route: 041
     Dates: start: 20190409, end: 20190411
  24. GLUCOSE [Concomitant]
     Active Substance: DEXTROSE
     Indication: HYPOGLYCAEMIA
     Dosage: 40 GRAM
     Route: 041
     Dates: start: 20190509, end: 20190509
  25. HUMULIN R [Concomitant]
     Active Substance: INSULIN HUMAN
     Route: 058
     Dates: start: 20190412, end: 20190412
  26. HUMULIN R [Concomitant]
     Active Substance: INSULIN HUMAN
     Route: 058
     Dates: start: 20190505, end: 20190505
  27. HUMULIN R [Concomitant]
     Active Substance: INSULIN HUMAN
     Route: 041
     Dates: start: 20190513, end: 20190517
  28. HUMULIN R [Concomitant]
     Active Substance: INSULIN HUMAN
     Route: 058
     Dates: start: 20190515, end: 20190518
  29. HUMULIN R [Concomitant]
     Active Substance: INSULIN HUMAN
     Route: 041
     Dates: start: 20190519, end: 20190519
  30. BAYASPIRIN [Concomitant]
     Active Substance: ASPIRIN
     Indication: THROMBOSIS PROPHYLAXIS
     Dosage: 100 MILLIGRAM
     Route: 048
     Dates: start: 20190420, end: 20190502
  31. ALFACALCIDOL [Concomitant]
     Active Substance: ALFACALCIDOL
     Indication: HYPOCALCAEMIA
     Dosage: 0.75 MICROGRAM
     Route: 048
     Dates: start: 20190423
  32. SODIUM CHLORIDE. [Concomitant]
     Active Substance: SODIUM CHLORIDE
     Indication: FLUID REPLACEMENT
     Route: 041
     Dates: start: 20190426, end: 20190430
  33. ULITIVA [Concomitant]
     Indication: GENERAL ANAESTHESIA
     Dosage: 2 MILLIGRAM
     Route: 041
     Dates: start: 20190510, end: 20190510
  34. FENTANYL. [Concomitant]
     Active Substance: FENTANYL
     Indication: ENDOTRACHEAL INTUBATION
     Dosage: 0.16 MILLIGRAM
     Route: 041
     Dates: start: 20190507, end: 20190507
  35. PRECEDEX [Concomitant]
     Active Substance: DEXMEDETOMIDINE HYDROCHLORIDE
     Dosage: 203 MICROGRAM
     Route: 041
     Dates: start: 20190508, end: 20190508
  36. PRECEDEX [Concomitant]
     Active Substance: DEXMEDETOMIDINE HYDROCHLORIDE
     Dosage: 220.4 MICROGRAM
     Route: 041
     Dates: start: 20190510, end: 20190510
  37. PRECEDEX [Concomitant]
     Active Substance: DEXMEDETOMIDINE HYDROCHLORIDE
     Dosage: 168 MICROGRAM
     Route: 041
     Dates: start: 20190512, end: 20190512
  38. DARATUMUMAB [Concomitant]
     Active Substance: DARATUMUMAB
     Indication: PLASMA CELL MYELOMA
     Dosage: 257.1429 MILLIGRAM
     Route: 058
     Dates: start: 20190419, end: 20190426
  39. TRAMAL [Concomitant]
     Active Substance: TRAMADOL
     Indication: SPINAL COMPRESSION FRACTURE
     Dosage: 100 MILLIGRAM
     Route: 048
     Dates: start: 20190404, end: 20190405
  40. CALONAL [Concomitant]
     Active Substance: ACETAMINOPHEN
     Indication: SPINAL COMPRESSION FRACTURE
     Dosage: 1500 MILLIGRAM
     Route: 048
     Dates: start: 20190404, end: 20190410
  41. NITROGLYCERIN. [Concomitant]
     Active Substance: NITROGLYCERIN
     Route: 041
     Dates: start: 20190409, end: 20190409
  42. KENKETSU ALBUMIN [Concomitant]
     Indication: HYPOALBUMINAEMIA
     Dosage: 20 MILLILITER
     Route: 041
     Dates: start: 20190506, end: 20190507
  43. LACTEC [Concomitant]
     Active Substance: CALCIUM CHLORIDE ANHYDROUS\POTASSIUM CHLORIDE\SODIUM CHLORIDE\SODIUM LACTATE
     Route: 041
     Dates: start: 20190427, end: 20190428
  44. LACTEC [Concomitant]
     Active Substance: CALCIUM CHLORIDE ANHYDROUS\POTASSIUM CHLORIDE\SODIUM CHLORIDE\SODIUM LACTATE
     Route: 041
     Dates: start: 20190502, end: 20190502
  45. HUMULIN R [Concomitant]
     Active Substance: INSULIN HUMAN
     Route: 041
     Dates: start: 20190426, end: 20190430
  46. HUMULIN R [Concomitant]
     Active Substance: INSULIN HUMAN
     Route: 058
     Dates: start: 20190520, end: 20190520
  47. XYLOCAINE [Concomitant]
     Active Substance: LIDOCAINE HYDROCHLORIDE
     Indication: ASPIRATION BONE MARROW
     Dosage: UNKNOWN
     Route: 061
     Dates: start: 20190408, end: 20190409
  48. TRAZENTA [Concomitant]
     Active Substance: LINAGLIPTIN
     Indication: HYPERGLYCAEMIA
     Dosage: 5 MILLIGRAM
     Route: 048
     Dates: start: 20190425, end: 20190504
  49. HEPARINOID [Concomitant]
     Active Substance: CHONDROITIN SULFATE (BOVINE)
     Indication: DRY SKIN PROPHYLAXIS
     Dosage: UNKNOWN
     Route: 061
     Dates: start: 20190422
  50. AMBROXOL HYDROCHLORIDE [Concomitant]
     Active Substance: AMBROXOL HYDROCHLORIDE
     Indication: PNEUMONIA
     Dosage: 45 MILLIGRAM
     Route: 048
     Dates: start: 20190509
  51. SODIUM CHLORIDE. [Concomitant]
     Active Substance: SODIUM CHLORIDE
     Indication: ELECTROLYTE SUBSTITUTION THERAPY
     Route: 041
     Dates: start: 20190501, end: 20190504
  52. RUPAFIN [Concomitant]
     Active Substance: RUPATADINE FUMARATE
     Indication: DRUG ERUPTION
     Dosage: 10 MILLIGRAM
     Route: 048
     Dates: start: 20190523, end: 20190530
  53. METOCLOPRAMIDE. [Concomitant]
     Active Substance: METOCLOPRAMIDE
     Indication: PROPHYLAXIS OF NAUSEA AND VOMITING
     Dosage: 5 MILLIGRAM
     Route: 048
     Dates: start: 20190528
  54. PANTOL [Concomitant]
     Active Substance: DEXPANTHENOL
     Dosage: 1000 MILLIGRAM
     Route: 041
     Dates: start: 20190510, end: 20190519
  55. FENTANYL. [Concomitant]
     Active Substance: FENTANYL
     Dosage: 0.15 MILLIGRAM
     Route: 041
     Dates: start: 20190510, end: 20190510
  56. PRECEDEX [Concomitant]
     Active Substance: DEXMEDETOMIDINE HYDROCHLORIDE
     Dosage: 192 MICROGRAM
     Route: 041
     Dates: start: 20190507, end: 20190507
  57. NOR-ADRENALIN [Concomitant]
     Dosage: 2.79 MILLIGRAM
     Route: 041
     Dates: start: 20190507, end: 20190507
  58. PICOSULFATE [Concomitant]
     Active Substance: SODIUM PICOSULFATE
     Indication: CONSTIPATION
     Dosage: UNKNOWN
     Route: 048
     Dates: start: 20190424
  59. LYRICA [Concomitant]
     Active Substance: PREGABALIN
     Dosage: 50 MILLIGRAM
     Route: 048
     Dates: start: 20190501, end: 20190503
  60. SODIUM RABEPRAZOLE [Concomitant]
     Active Substance: RABEPRAZOLE SODIUM
     Indication: PROPHYLAXIS AGAINST GASTROINTESTINAL ULCER
     Dosage: 10 MILLIGRAM
     Route: 048
     Dates: start: 20190405
  61. FUROSEMIDE. [Concomitant]
     Active Substance: FUROSEMIDE
     Dosage: 40 MILLIGRAM
     Route: 041
     Dates: start: 20190409, end: 20190410
  62. FUROSEMIDE. [Concomitant]
     Active Substance: FUROSEMIDE
     Route: 041
     Dates: start: 20190505, end: 20190505
  63. LACTEC [Concomitant]
     Active Substance: CALCIUM CHLORIDE ANHYDROUS\POTASSIUM CHLORIDE\SODIUM CHLORIDE\SODIUM LACTATE
     Route: 041
     Dates: start: 20190503, end: 20190504
  64. HUMULIN R [Concomitant]
     Active Substance: INSULIN HUMAN
     Indication: HYPERGLYCAEMIA
     Route: 041
     Dates: start: 20190406, end: 20190406
  65. HUMULIN R [Concomitant]
     Active Substance: INSULIN HUMAN
     Route: 041
     Dates: start: 20190501, end: 20190504
  66. HUMULIN R [Concomitant]
     Active Substance: INSULIN HUMAN
     Route: 041
     Dates: start: 20190509, end: 20190509
  67. HUMULIN R [Concomitant]
     Active Substance: INSULIN HUMAN
     Route: 058
     Dates: start: 20190519, end: 20190519
  68. HUMULIN R [Concomitant]
     Active Substance: INSULIN HUMAN
     Route: 058
     Dates: start: 20190528, end: 20190528
  69. FILGRASTIM [Concomitant]
     Active Substance: FILGRASTIM
     Indication: FEBRILE NEUTROPENIA
     Dosage: 75 MICROGRAM
     Route: 058
     Dates: start: 20190508, end: 20190513
  70. KCL [Concomitant]
     Active Substance: POTASSIUM CHLORIDE
     Dosage: 20 MILLILITER
     Route: 041
     Dates: start: 20190506, end: 20190526
  71. FUNGIZONE [Concomitant]
     Active Substance: AMPHOTERICIN B
     Indication: ANTIFUNGAL PROPHYLAXIS
     Dosage: UNKNOWN
     Route: 061
     Dates: start: 20190529
  72. ZINC OXIDE. [Concomitant]
     Active Substance: ZINC OXIDE
     Indication: DRY SKIN PROPHYLAXIS
     Dosage: UNKNOWN
     Route: 061
     Dates: start: 20190510
  73. CC-5013 [Suspect]
     Active Substance: LENALIDOMIDE
     Indication: PLASMA CELL MYELOMA
     Dosage: 10 MILLIGRAM
     Route: 048
     Dates: start: 20190419, end: 20190502
  74. BORTEZOMIB. [Concomitant]
     Active Substance: BORTEZOMIB
     Indication: PLASMA CELL MYELOMA
     Route: 058
     Dates: start: 20190419, end: 20190429
  75. METHYCOBAL [Concomitant]
     Active Substance: METHYLCOBALAMIN
     Indication: VITAMIN B12 DEFICIENCY
     Dosage: 1500 MICROGRAM
     Route: 048
     Dates: start: 20190405, end: 20190423
  76. RANMARK [Concomitant]
     Active Substance: DENOSUMAB
     Indication: PROPHYLAXIS
  77. KN NO.1 [Concomitant]
     Route: 041
     Dates: start: 20190414, end: 20190415
  78. KN NO.1 [Concomitant]
     Route: 041
     Dates: start: 20190419, end: 20190422
  79. GLUCOSE [Concomitant]
     Active Substance: DEXTROSE
     Dosage: 10 GRAM
     Route: 041
     Dates: start: 20190511, end: 20190511
  80. LACTEC [Concomitant]
     Active Substance: CALCIUM CHLORIDE ANHYDROUS\POTASSIUM CHLORIDE\SODIUM CHLORIDE\SODIUM LACTATE
     Route: 041
     Dates: start: 20190430, end: 20190501
  81. UBIDECARENONE. [Concomitant]
     Active Substance: UBIDECARENONE
     Indication: CARDIOVASCULAR EVENT PROPHYLAXIS
     Dosage: 30 MILLIGRAM
     Route: 048
     Dates: start: 20190411, end: 20190423
  82. HUMULIN R [Concomitant]
     Active Substance: INSULIN HUMAN
     Route: 058
     Dates: start: 20190506, end: 20190508
  83. HUMULIN R [Concomitant]
     Active Substance: INSULIN HUMAN
     Route: 058
     Dates: start: 20190512, end: 20190513
  84. HUMULIN R [Concomitant]
     Active Substance: INSULIN HUMAN
     Route: 041
     Dates: start: 20190518, end: 20190518
  85. HUMULIN R [Concomitant]
     Active Substance: INSULIN HUMAN
     Route: 058
     Dates: start: 20190524, end: 20190524
  86. HUMULIN R [Concomitant]
     Active Substance: INSULIN HUMAN
     Route: 058
     Dates: start: 20190529, end: 20190529
  87. CALCIUM LACTATE HYDRATE [Concomitant]
     Active Substance: CALCIUM LACTATE
     Indication: HYPOCALCAEMIA
     Dosage: 3 GRAM
     Route: 048
     Dates: start: 20190422
  88. AMBROXOL HYDROCHLORIDE [Concomitant]
     Active Substance: AMBROXOL HYDROCHLORIDE
     Indication: SPUTUM RETENTION
     Dosage: 45 MILLIGRAM
     Route: 048
     Dates: start: 20190423, end: 20190504
  89. BFLUID [Concomitant]
     Active Substance: AMINO ACIDS\DEXTROSE\ELECTROLYTES NOS\VITAMINS
     Dosage: 500 MILLILITER
     Route: 041
     Dates: start: 20190501, end: 20190504
  90. OMEPRAZOLE. [Concomitant]
     Active Substance: OMEPRAZOLE
     Indication: UPPER GASTROINTESTINAL HAEMORRHAGE
     Dosage: 40 MILLIGRAM
     Route: 041
     Dates: start: 20190506, end: 20190509
  91. PANTOL [Concomitant]
     Active Substance: DEXPANTHENOL
     Indication: CONSTIPATION
     Dosage: 1500 MILLIGRAM
     Route: 041
     Dates: start: 20190507, end: 20190509
  92. FENTANYL. [Concomitant]
     Active Substance: FENTANYL
     Indication: TRACHEAL PAIN
     Dosage: 0.24 MILLIGRAM
     Route: 041
     Dates: start: 20190506, end: 20190506
  93. PRECEDEX [Concomitant]
     Active Substance: DEXMEDETOMIDINE HYDROCHLORIDE
     Dosage: 297.88 MICROGRAM
     Route: 041
     Dates: start: 20190506, end: 20190506
  94. PRECEDEX [Concomitant]
     Active Substance: DEXMEDETOMIDINE HYDROCHLORIDE
     Dosage: 256 MICROGRAM
     Route: 041
     Dates: start: 20190509, end: 20190509
  95. BROTIZOLAM [Concomitant]
     Active Substance: BROTIZOLAM
     Indication: INSOMNIA
     Route: 048
     Dates: start: 20190601, end: 20190601
  96. TRAMAL [Concomitant]
     Active Substance: TRAMADOL
     Dosage: 200 MILLIGRAM
     Route: 048
     Dates: start: 20190406, end: 20190410
  97. SODIUM RABEPRAZOLE [Concomitant]
     Active Substance: RABEPRAZOLE SODIUM
     Dosage: 10 MILLIGRAM
     Route: 048
     Dates: start: 20190510, end: 20190510
  98. FUROSEMIDE. [Concomitant]
     Active Substance: FUROSEMIDE
     Dosage: 60 MILLIGRAM
     Route: 041
     Dates: start: 20190408, end: 20190408
  99. NITROGLYCERIN. [Concomitant]
     Active Substance: NITROGLYCERIN
     Indication: TRANSFUSION-RELATED CIRCULATORY OVERLOAD
     Route: 041
     Dates: start: 20190408, end: 20190408
  100. GLUCOSE [Concomitant]
     Active Substance: DEXTROSE
     Dosage: 70 GRAM
     Route: 041
     Dates: start: 20190518, end: 20190518
  101. LACTEC [Concomitant]
     Active Substance: CALCIUM CHLORIDE ANHYDROUS\POTASSIUM CHLORIDE\SODIUM CHLORIDE\SODIUM LACTATE
     Route: 041
     Dates: start: 20190429, end: 20190429
  102. AMLODIPINE [Concomitant]
     Active Substance: AMLODIPINE BESYLATE
     Dosage: 5 MILLIGRAM
     Route: 048
     Dates: start: 20190426, end: 20190504
  103. AZUNOL [Concomitant]
     Indication: INFECTION PROPHYLAXIS
     Dosage: UNKNOWN
     Route: 061
     Dates: start: 20190415
  104. HUMULIN R [Concomitant]
     Active Substance: INSULIN HUMAN
     Route: 058
     Dates: start: 20190411, end: 20190411
  105. HUMULIN R [Concomitant]
     Active Substance: INSULIN HUMAN
     Route: 041
     Dates: start: 20190507, end: 20190508
  106. HUMULIN R [Concomitant]
     Active Substance: INSULIN HUMAN
     Route: 041
     Dates: start: 20190520, end: 20190526
  107. CARBOCISTEINE [Concomitant]
     Active Substance: CARBOCYSTEINE
     Indication: SPUTUM RETENTION
     Dosage: 1500 MILLIGRAM
     Route: 048
     Dates: start: 20190515
  108. ANFLAVATE [Concomitant]
     Active Substance: BETAMETHASONE BUTYRATE PROPIONATE
     Indication: DRUG ERUPTION
     Dosage: UNKNOWN
     Route: 061
     Dates: start: 20190523, end: 20190530
  109. NEO-SYNESIN KOWA [Concomitant]
     Indication: ENDOTRACHEAL INTUBATION
     Dosage: 0.2 MILLIGRAM
     Route: 041
     Dates: start: 20190505, end: 20190505
  110. ELNEOPA NF NO.2 [Concomitant]
     Indication: FLUID REPLACEMENT
     Dosage: 1000 MILLILITER
     Route: 041
     Dates: start: 20190507, end: 20190526
  111. FENTANYL. [Concomitant]
     Active Substance: FENTANYL
     Dosage: 0.12 MILLIGRAM
     Route: 041
     Dates: start: 20190508, end: 20190509
  112. FENTANYL. [Concomitant]
     Active Substance: FENTANYL
     Dosage: 0.2 MILLIGRAM
     Route: 041
     Dates: start: 20190510, end: 20190510
  113. TRAMAL [Concomitant]
     Active Substance: TRAMADOL
     Dosage: 50 MILLIGRAM
     Route: 048
     Dates: start: 20190425, end: 20190503
  114. TRAMAL [Concomitant]
     Active Substance: TRAMADOL
     Dosage: 50 MILLIGRAM
     Route: 048
     Dates: start: 20190529
  115. LYRICA [Concomitant]
     Active Substance: PREGABALIN
     Indication: SPINAL COMPRESSION FRACTURE
     Dosage: 150 MILLIGRAM
     Route: 048
     Dates: start: 20190423
  116. LYRICA [Concomitant]
     Active Substance: PREGABALIN
     Dosage: 100 MILLIGRAM
     Route: 048
     Dates: start: 20190424, end: 20190430
  117. RANMARK [Concomitant]
     Active Substance: DENOSUMAB
     Indication: PLASMA CELL MYELOMA
     Route: 058
     Dates: start: 20190404, end: 20190404
  118. FUROSEMIDE. [Concomitant]
     Active Substance: FUROSEMIDE
     Indication: CARDIOVASCULAR EVENT PROPHYLAXIS
     Route: 041
     Dates: start: 20190405, end: 20190405
  119. FUROSEMIDE. [Concomitant]
     Active Substance: FUROSEMIDE
     Route: 041
     Dates: start: 20190411, end: 20190411
  120. KN NO.1 [Concomitant]
     Indication: FLUID REPLACEMENT
     Dosage: 1000 MILLILITER
     Route: 041
     Dates: start: 20190407, end: 20190408
  121. KN NO.1 [Concomitant]
     Route: 041
     Dates: start: 20190424, end: 20190425
  122. KN NO.1 [Concomitant]
     Route: 041
     Dates: start: 20190426, end: 20190426
  123. LACTEC [Concomitant]
     Active Substance: CALCIUM CHLORIDE ANHYDROUS\POTASSIUM CHLORIDE\SODIUM CHLORIDE\SODIUM LACTATE
     Route: 041
     Dates: start: 20190412, end: 20190412
  124. LACTEC [Concomitant]
     Active Substance: CALCIUM CHLORIDE ANHYDROUS\POTASSIUM CHLORIDE\SODIUM CHLORIDE\SODIUM LACTATE
     Route: 041
     Dates: start: 20190413, end: 20190413
  125. LACTEC [Concomitant]
     Active Substance: CALCIUM CHLORIDE ANHYDROUS\POTASSIUM CHLORIDE\SODIUM CHLORIDE\SODIUM LACTATE
     Route: 041
     Dates: start: 20190505, end: 20190505
  126. AMLODIPINE [Concomitant]
     Active Substance: AMLODIPINE BESYLATE
     Indication: TRANSFUSION-RELATED CIRCULATORY OVERLOAD
     Dosage: 2.5 MILLIGRAM
     Route: 048
     Dates: start: 20190413, end: 20190414
  127. HUMULIN R [Concomitant]
     Active Substance: INSULIN HUMAN
     Route: 058
     Dates: start: 20190414, end: 20190414
  128. HUMULIN R [Concomitant]
     Active Substance: INSULIN HUMAN
     Route: 041
     Dates: start: 20190510, end: 20190510
  129. HUMULIN R [Concomitant]
     Active Substance: INSULIN HUMAN
     Route: 058
     Dates: start: 20190514, end: 20190514
  130. MIDAZOLAM. [Concomitant]
     Active Substance: MIDAZOLAM
     Indication: SEDATION
     Route: 041
     Dates: start: 20190505, end: 20190505
  131. TRAZENTA [Concomitant]
     Active Substance: LINAGLIPTIN
     Dosage: 5 MILLIGRAM
     Route: 048
     Dates: start: 20190514
  132. ISONIAZID. [Concomitant]
     Active Substance: ISONIAZID
     Indication: ANTIBIOTIC PROPHYLAXIS
     Dosage: 200 MILLIGRAM
     Route: 048
     Dates: start: 20190410
  133. PROPETO [Concomitant]
     Active Substance: PETROLATUM
     Indication: DRY SKIN PROPHYLAXIS
     Dosage: UNKNOWN
     Route: 061
     Dates: start: 20190422
  134. MEPTIN [Concomitant]
     Active Substance: PROCATEROL HYDROCHLORIDE
     Indication: SPUTUM RETENTION
     Dosage: UNKNOWN
     Route: 061
     Dates: start: 20190412
  135. BFLUID [Concomitant]
     Active Substance: AMINO ACIDS\DEXTROSE\ELECTROLYTES NOS\VITAMINS
     Indication: FLUID REPLACEMENT
     Route: 041
     Dates: start: 20190426, end: 20190430
  136. BFLUID [Concomitant]
     Active Substance: AMINO ACIDS\DEXTROSE\ELECTROLYTES NOS\VITAMINS
     Dosage: 1000 MILLILITER
     Route: 041
     Dates: start: 20190505, end: 20190505
  137. SODIUM CHLORIDE. [Concomitant]
     Active Substance: SODIUM CHLORIDE
     Route: 041
     Dates: start: 20190505, end: 20190505
  138. ELNEOPA-NF NO.1 [Concomitant]
     Indication: FLUID REPLACEMENT
     Dosage: 1000 MILLILITER
     Route: 041
     Dates: start: 20190506, end: 20190506
  139. ELNEOPA-NF NO.1 [Concomitant]
     Dosage: 1000 MILLILITER
     Route: 041
     Dates: start: 20190527, end: 20190527
  140. PRECEDEX [Concomitant]
     Active Substance: DEXMEDETOMIDINE HYDROCHLORIDE
     Indication: ENDOTRACHEAL INTUBATION
     Dosage: 8 MICROGRAM
     Route: 041
     Dates: start: 20190505, end: 20190505
  141. NOR-ADRENALIN [Concomitant]
     Dosage: 6.58 MILLIGRAM
     Route: 041
     Dates: start: 20190506, end: 20190506
  142. CYANOCOBALAMIN. [Concomitant]
     Active Substance: CYANOCOBALAMIN
     Indication: VITAMIN B12 DEFICIENCY
     Route: 065
  143. TRAMAL [Concomitant]
     Active Substance: TRAMADOL
     Dosage: 100 MILLIGRAM
     Route: 048
     Dates: start: 20190410, end: 20190424
  144. FEBURIC [Concomitant]
     Active Substance: FEBUXOSTAT
     Indication: HYPERURICAEMIA
     Dosage: 40 MILLIGRAM
     Route: 048
     Dates: start: 20190405, end: 20190423
  145. SENNOSIDE [Concomitant]
     Active Substance: SENNOSIDES
     Indication: CONSTIPATION
     Route: 048
     Dates: start: 20190407
  146. CEFTAZIDIME. [Concomitant]
     Active Substance: CEFTAZIDIME
     Indication: PNEUMONIA
     Dosage: 2 GRAM
     Route: 041
     Dates: start: 20190409, end: 20190415
  147. KENKETSU ALBUMIN [Concomitant]
     Indication: TRANSFUSION-RELATED CIRCULATORY OVERLOAD
     Dosage: 100 MILLILITER
     Route: 041
     Dates: start: 20190410, end: 20190411
  148. LACTEC [Concomitant]
     Active Substance: CALCIUM CHLORIDE ANHYDROUS\POTASSIUM CHLORIDE\SODIUM CHLORIDE\SODIUM LACTATE
     Indication: FLUID REPLACEMENT
     Route: 041
     Dates: start: 20190411, end: 20190411
  149. ISCOTIN [Concomitant]
     Active Substance: ISONIAZID
     Indication: ANTIBIOTIC PROPHYLAXIS
     Dosage: 200 MILLIGRAM
     Route: 048
     Dates: start: 20190410
  150. NEUROVITAN [Concomitant]
     Active Substance: VITAMINS
     Indication: VITAMIN B12 DEFICIENCY
     Dosage: 3 TABLET
     Route: 048
     Dates: start: 20190411, end: 20190423
  151. TELEMINSOFT [Concomitant]
     Active Substance: BISACODYL
     Indication: CONSTIPATION
     Route: 061
     Dates: start: 20190414
  152. HUMULIN R [Concomitant]
     Active Substance: INSULIN HUMAN
     Route: 058
     Dates: start: 20190414, end: 20190414
  153. HUMULIN R [Concomitant]
     Active Substance: INSULIN HUMAN
     Route: 058
     Dates: start: 20190501, end: 20190501
  154. MIDAZOLAM. [Concomitant]
     Active Substance: MIDAZOLAM
     Indication: ENDOTRACHEAL INTUBATION
     Route: 041
     Dates: start: 20190505, end: 20190505
  155. CARBAZOCHROME SODIUM SULFONATE [Concomitant]
     Active Substance: CARBAZOCHROME SODIUM SULFONATE
     Indication: UPPER GASTROINTESTINAL HAEMORRHAGE
     Dosage: 50 MILLIGRAM
     Route: 041
     Dates: start: 20190504, end: 20190505
  156. BFLUID [Concomitant]
     Active Substance: AMINO ACIDS\DEXTROSE\ELECTROLYTES NOS\VITAMINS
     Dosage: 1000 MILLILITER
     Route: 041
     Dates: start: 20190528
  157. FEXOFENADINE HYDROCHLORIDE. [Concomitant]
     Active Substance: FEXOFENADINE HYDROCHLORIDE
     Indication: PROPHYLAXIS
     Route: 048
     Dates: start: 20190419
  158. LANSOPRAZOLE. [Concomitant]
     Active Substance: LANSOPRAZOLE
     Indication: PROPHYLAXIS AGAINST GASTROINTESTINAL ULCER
     Dosage: 15 MILLIGRAM
     Route: 048
     Dates: start: 20190511
  159. BELSOMRA [Concomitant]
     Active Substance: SUVOREXANT
     Indication: INSOMNIA
     Dosage: 15 MILLIGRAM
     Route: 048
     Dates: start: 20190512
  160. FENTANYL. [Concomitant]
     Active Substance: FENTANYL
     Dosage: 0.07 MILLIGRAM
     Route: 041
     Dates: start: 20190514, end: 20190514

REACTIONS (1)
  - Pneumonia [Recovered/Resolved]

NARRATIVE: CASE EVENT DATE: 20190505
